FAERS Safety Report 5615850-3 (Version None)
Quarter: 2008Q1

REPORT INFORMATION
  Report Type: 
  Country: None (occurrence: None)
  Receive Date: 20080201
  Receipt Date: 20080128
  Transmission Date: 20080703
  Serious: Yes (Hospitalization, Disabling)
  Sender: FDA-Public Use
  Company Number: 2007SP024472

PATIENT
  Age: 74 Year
  Sex: Male
  Weight: 61 kg

DRUGS (5)
  1. PEG-INTRON [Suspect]
     Indication: HEPATITIS C
     Dosage: 80 MCG;QW;SC
     Route: 058
     Dates: start: 20060830, end: 20061206
  2. REBETOL [Suspect]
     Indication: HEPATITIS C
     Dosage: 800 MG;QD;PO 600 MG;QD;PO; 400 MG;QD;PO
     Route: 048
     Dates: start: 20060830, end: 20060919
  3. REBETOL [Suspect]
     Indication: HEPATITIS C
     Dosage: 800 MG;QD;PO 600 MG;QD;PO; 400 MG;QD;PO
     Route: 048
     Dates: start: 20060920, end: 20061017
  4. REBETOL [Suspect]
     Indication: HEPATITIS C
     Dosage: 800 MG;QD;PO 600 MG;QD;PO; 400 MG;QD;PO
     Route: 048
     Dates: start: 20061018, end: 20061212
  5. MERCAZOLE [Concomitant]

REACTIONS (7)
  - DECREASED APPETITE [None]
  - DIABETIC KETOACIDOSIS [None]
  - DRY MOUTH [None]
  - METABOLIC ACIDOSIS [None]
  - THIRST [None]
  - TYPE 1 DIABETES MELLITUS [None]
  - WEIGHT DECREASED [None]
